FAERS Safety Report 5616123-5 (Version None)
Quarter: 2008Q1

REPORT INFORMATION
  Report Type: 
  Country: None (occurrence: None)
  Receive Date: 20080201
  Receipt Date: 20080117
  Transmission Date: 20080703
  Serious: Yes (Other)
  Sender: FDA-Public Use
  Company Number: 021346

PATIENT
  Age: 20 Year
  Sex: Female

DRUGS (3)
  1. CLARAVIS [Suspect]
     Dosage: 10 MG, QD, ORAL, 40 MG, QD, ORAL
     Route: 048
     Dates: start: 20071030, end: 20071129
  2. CLARAVIS [Suspect]
     Dosage: 10 MG, QD, ORAL, 40 MG, QD, ORAL
     Route: 048
     Dates: start: 20071030, end: 20071129
  3. ANTIBIOTICS [Suspect]
     Indication: URINARY TRACT INFECTION
     Dosage: ORAL
     Route: 048
     Dates: start: 20070101, end: 20071101

REACTIONS (5)
  - ABORTION SPONTANEOUS [None]
  - DRUG EXPOSURE DURING PREGNANCY [None]
  - PREGNANCY ON ORAL CONTRACEPTIVE [None]
  - UNINTENDED PREGNANCY [None]
  - URINARY TRACT INFECTION [None]
